FAERS Safety Report 7647117-6 (Version None)
Quarter: 2011Q3

REPORT INFORMATION
  Report Type: 
  Country: None (occurrence: None)
  Receive Date: 20110801
  Receipt Date: 20110721
  Transmission Date: 20111222
  Serious: Yes (Other)
  Sender: FDA-Public Use
  Company Number: US-ROCHE-734304

PATIENT
  Sex: Female
  Weight: 113.4 kg

DRUGS (1)
  1. ACCUTANE [Suspect]
     Indication: ACNE
     Route: 065
     Dates: start: 20060501, end: 20060521

REACTIONS (10)
  - LIVER DISORDER [None]
  - GALLBLADDER DISORDER [None]
  - INFLAMMATORY BOWEL DISEASE [None]
  - COLITIS ULCERATIVE [None]
  - RENAL DISORDER [None]
  - PRURITUS [None]
  - INTESTINAL OBSTRUCTION [None]
  - GASTROINTESTINAL INJURY [None]
  - PANCREATITIS [None]
  - IRRITABLE BOWEL SYNDROME [None]
